FAERS Safety Report 4622279-3 (Version None)
Quarter: 2005Q1

REPORT INFORMATION
  Report Type: 
  Country: None (occurrence: None)
  Receive Date: 20050328
  Receipt Date: 20050318
  Transmission Date: 20050727
  Serious: Yes (Other)
  Sender: FDA-Public Use
  Company Number: 2005-03-1409

PATIENT

DRUGS (8)
  1. RINDERON INJECTABLE SOLUTION (BETAMETHASONE SODIUM PHOSPHATE) (LIKE CE [Suspect]
     Indication: ASTHMA
     Dosage: 4 MG ONCE
     Dates: start: 20050113, end: 20050113
  2. RINDERON INJECTABLE SOLUTION (BETAMETHASONE SODIUM PHOSPHATE) (LIKE CE [Suspect]
     Indication: BRONCHITIS ACUTE
     Dosage: 4 MG ONCE
     Dates: start: 20050113, end: 20050113
  3. RINDERON INJECTABLE SOLUTION (BETAMETHASONE SODIUM PHOSPHATE) (LIKE CE [Suspect]
     Indication: ASTHMA
     Dosage: 4 MG ONCE
     Dates: start: 20050118, end: 20050118
  4. RINDERON INJECTABLE SOLUTION (BETAMETHASONE SODIUM PHOSPHATE) (LIKE CE [Suspect]
     Indication: BRONCHITIS ACUTE
     Dosage: 4 MG ONCE
     Dates: start: 20050118, end: 20050118
  5. INTAL [Suspect]
     Indication: ASTHMA
     Dosage: 1 AMPULE ONCE INHALATION
     Route: 055
     Dates: start: 20050113, end: 20050113
  6. INTAL [Suspect]
     Indication: BRONCHITIS ACUTE
     Dosage: 1 AMPULE ONCE INHALATION
     Route: 055
     Dates: start: 20050113, end: 20050113
  7. MEPTIN INHALATION SOLUTION [Suspect]
     Indication: ASTHMA
     Dosage: 0.3 CC ONCE INHALATION
     Route: 055
     Dates: start: 20050113, end: 20050113
  8. MEPTIN INHALATION SOLUTION [Suspect]
     Indication: BRONCHITIS ACUTE
     Dosage: 0.3 CC ONCE INHALATION
     Route: 055
     Dates: start: 20050113, end: 20050113

REACTIONS (14)
  - ABDOMINAL PAIN UPPER [None]
  - CHILLS [None]
  - DIZZINESS [None]
  - HEADACHE [None]
  - HYPOAESTHESIA [None]
  - INJURY [None]
  - INSOMNIA [None]
  - LOSS OF CONSCIOUSNESS [None]
  - MALAISE [None]
  - MUSCLE SPASMS [None]
  - PALPITATIONS [None]
  - PRE-EXISTING DISEASE [None]
  - SPINAL DISORDER [None]
  - VISION BLURRED [None]
